FAERS Safety Report 22353090 (Version 2)
Quarter: 2023Q4

REPORT INFORMATION
  Report Type: Report from Study
  Country: US (occurrence: US)
  Receive Date: 20230523
  Receipt Date: 20231226
  Transmission Date: 20240110
  Serious: Yes (Hospitalization, Other)
  Sender: FDA-Public Use
  Company Number: US-ABBVIE-5175325

PATIENT
  Age: 47 Year
  Sex: Male

DRUGS (4)
  1. SKYRIZI [Suspect]
     Active Substance: RISANKIZUMAB-RZAA
     Indication: Crohn^s disease
     Dosage: 360MG/2.4ML
     Route: 058
     Dates: start: 20230308
  2. SKYRIZI [Suspect]
     Active Substance: RISANKIZUMAB-RZAA
     Indication: Crohn^s disease
     Dosage: TIME INTERVAL: TOTAL: FORM STRENGTH: 600MILLIGRAMS??WEEK 0
     Route: 042
     Dates: start: 202212, end: 202212
  3. SKYRIZI [Suspect]
     Active Substance: RISANKIZUMAB-RZAA
     Indication: Crohn^s disease
     Dosage: TIME INTERVAL: TOTAL: FORM STRENGTH: 600MILLIGRAMS?WEEK 8
     Route: 042
     Dates: start: 202302, end: 202302
  4. SKYRIZI [Suspect]
     Active Substance: RISANKIZUMAB-RZAA
     Indication: Crohn^s disease
     Dosage: TIME INTERVAL: TOTAL: FORM STRENGTH: 600MILLIGRAMS?WEEK 4
     Route: 042
     Dates: start: 202301, end: 202301

REACTIONS (7)
  - Gallbladder operation [Unknown]
  - Insomnia [Unknown]
  - Insomnia [Recovered/Resolved]
  - Gastrointestinal sounds abnormal [Unknown]
  - Fatigue [Unknown]
  - Pulmonary thrombosis [Unknown]
  - Asthenia [Unknown]

NARRATIVE: CASE EVENT DATE: 20230401
